FAERS Safety Report 12211604 (Version 1)
Quarter: 2016Q1

REPORT INFORMATION
  Report Type: Spontaneous
  Country: US (occurrence: US)
  Receive Date: 20160325
  Receipt Date: 20160325
  Transmission Date: 20160526
  Serious: Yes (Hospitalization, Other)
  Sender: FDA-Public Use
  Company Number: US-SA-2016SA032685

PATIENT
  Age: 55 Year
  Sex: Female

DRUGS (5)
  1. AUBAGIO [Suspect]
     Active Substance: TERIFLUNOMIDE
     Indication: MULTIPLE SCLEROSIS
     Route: 048
     Dates: start: 20160120
  2. LISINOPRIL. [Concomitant]
     Active Substance: LISINOPRIL
  3. AMOXICILLIN. [Concomitant]
     Active Substance: AMOXICILLIN
  4. AUBAGIO [Suspect]
     Active Substance: TERIFLUNOMIDE
     Indication: MULTIPLE SCLEROSIS
     Route: 048
     Dates: start: 20160115
  5. HYDROCODONE BITARTRATE AND ACETAMINOPHEN [Concomitant]
     Active Substance: ACETAMINOPHEN\HYDROCODONE BITARTRATE

REACTIONS (9)
  - Concussion [Unknown]
  - Fall [Unknown]
  - Walking aid user [Unknown]
  - Malaise [Recovering/Resolving]
  - Nausea [Unknown]
  - Loss of consciousness [Unknown]
  - Pneumonia [Unknown]
  - Diarrhoea [Unknown]
  - Head injury [Unknown]

NARRATIVE: CASE EVENT DATE: 20160115
